FAERS Safety Report 5265500-3 (Version None)
Quarter: 2007Q1

REPORT INFORMATION
  Report Type: 
  Country: None (occurrence: None)
  Receive Date: 20061213
  Receipt Date: 20040216
  Transmission Date: 20070707
  Serious: Yes (Other)
  Sender: FDA-Public Use
  Company Number: 2004UW02705

PATIENT

DRUGS (4)
  1. IRESSA [Suspect]
  2. ETOPOSIDE [Concomitant]
  3. ADRIAMYCIN PFS [Concomitant]
  4. PLATINOL [Concomitant]

REACTIONS (1)
  - PNEUMONIA [None]
